FAERS Safety Report 13163140 (Version 1)
Quarter: 2017Q1

REPORT INFORMATION
  Report Type: Spontaneous
  Country: US (occurrence: US)
  Receive Date: 20170129
  Receipt Date: 20170129
  Transmission Date: 20170428
  Serious: Yes (Life-Threatening, Hospitalization, Disabling)
  Sender: FDA-Public Use
  Company Number: None

PATIENT
  Age: 40 Year
  Sex: Female
  Weight: 73 kg

DRUGS (1)
  1. LYRICA [Suspect]
     Active Substance: PREGABALIN
     Indication: PROCEDURAL PAIN
     Dosage: TWICE A DAY ORAL
     Route: 048
     Dates: start: 20130501, end: 20141015

REACTIONS (8)
  - Cognitive disorder [None]
  - Akathisia [None]
  - Insomnia [None]
  - Depression suicidal [None]
  - Memory impairment [None]
  - Withdrawal syndrome [None]
  - Vomiting [None]
  - Tremor [None]

NARRATIVE: CASE EVENT DATE: 20141101
